FAERS Safety Report 7732617-0 (Version None)
Quarter: 2011Q3

REPORT INFORMATION
  Report Type: 
  Country: None (occurrence: None)
  Receive Date: 20110906
  Receipt Date: 20110825
  Transmission Date: 20111222
  Serious: Yes (Hospitalization)
  Sender: FDA-Public Use
  Company Number: US-BAYER-2011-080115

PATIENT
  Age: 21 Year
  Sex: Female
  Weight: 131.52 kg

DRUGS (4)
  1. AMPHETAMINE SULFATE [Concomitant]
  2. TYLENOL-500 [Concomitant]
  3. DROSPIRENONE AND ETHINYL ESTRADIOL [Suspect]
     Indication: CONTRACEPTION
     Dosage: UNK
     Dates: start: 20090201, end: 20090701
  4. DROSPIRENONE AND ETHINYL ESTRADIOL [Suspect]
     Indication: ACNE

REACTIONS (4)
  - PULMONARY EMBOLISM [None]
  - MENTAL DISORDER [None]
  - PAIN [None]
  - DEPRESSION [None]
